FAERS Safety Report 10021029 (Version 1)
Quarter: 2014Q1

REPORT INFORMATION
  Report Type: Spontaneous
  Country: JP (occurrence: JP)
  Receive Date: 20140319
  Receipt Date: 20140319
  Transmission Date: 20141002
  Serious: Yes (Other)
  Sender: FDA-Public Use
  Company Number: JP-ASTELLAS-2014JP002400

PATIENT
  Age: 2 Month
  Sex: Male

DRUGS (6)
  1. PROGRAF [Suspect]
     Indication: IMMUNOSUPPRESSION
     Route: 065
  2. BORTEZOMIB [Concomitant]
     Indication: CHEMOTHERAPY
     Route: 065
  3. FLUDARABINE [Concomitant]
     Indication: PREMEDICATION
     Route: 065
  4. MELPHALAN [Concomitant]
     Indication: PREMEDICATION
     Route: 065
  5. ANTITHYMOCYTE IMMUNOGLOBULIN [Concomitant]
     Indication: PREMEDICATION
     Dosage: 5 MG/KG, UNKNOWN/D
     Route: 065
  6. METHOTREXATE [Concomitant]
     Indication: IMMUNOSUPPRESSION
     Dosage: 5 MG/KG, UNKNOWN/D
     Route: 065

REACTIONS (2)
  - Drug ineffective [Unknown]
  - Graft versus host disease [Recovering/Resolving]
